FAERS Safety Report 15403955 (Version 1)
Quarter: 2018Q3

REPORT INFORMATION
  Report Type: Spontaneous
  Country: US (occurrence: US)
  Receive Date: 20180919
  Receipt Date: 20180919
  Transmission Date: 20181010
  Serious: No
  Sender: FDA-Public Use
  Company Number: US-AVADEL SPECIALTY PHARMACEUTICALS, LLC-2018AVA00083

PATIENT
  Age: 75 Year
  Sex: Female

DRUGS (2)
  1. NOCTIVA [Suspect]
     Active Substance: DESMOPRESSIN ACETATE
     Dosage: UNK
     Dates: start: 20180605
  2. UNSPECIFIED STEROID [Concomitant]
     Active Substance: UNSPECIFIED INGREDIENT
     Dosage: UNK, EVERY 48 HOURS

REACTIONS (3)
  - Cough [Recovered/Resolved]
  - Nasal discomfort [Recovered/Resolved]
  - Throat irritation [Recovered/Resolved]

NARRATIVE: CASE EVENT DATE: 20180605
